FAERS Safety Report 25394876 (Version 1)
Quarter: 2025Q2

REPORT INFORMATION
  Report Type: Spontaneous
  Country: US (occurrence: US)
  Receive Date: 20250604
  Receipt Date: 20250604
  Transmission Date: 20250717
  Serious: Yes (Other)
  Sender: ZYDUS PHARM
  Company Number: US-CADILA HEALTHCARE LIMITED-US-ZYDUS-124314

PATIENT

DRUGS (2)
  1. ISOTRETINOIN [Suspect]
     Active Substance: ISOTRETINOIN
     Indication: Product used for unknown indication
     Route: 065
     Dates: start: 20241211, end: 20250121
  2. ISOTRETINOIN [Suspect]
     Active Substance: ISOTRETINOIN
     Route: 065
     Dates: start: 20250122, end: 20250401

REACTIONS (4)
  - Abortion induced [Recovered/Resolved]
  - Exposure during pregnancy [Recovered/Resolved]
  - Treatment noncompliance [Recovered/Resolved]
  - Foetal exposure during pregnancy [Recovered/Resolved]

NARRATIVE: CASE EVENT DATE: 20250101
